FAERS Safety Report 10249645 (Version 6)
Quarter: 2016Q4

REPORT INFORMATION
  Report Type: Spontaneous
  Country: US (occurrence: US)
  Receive Date: 20140620
  Receipt Date: 20161129
  Transmission Date: 20170206
  Serious: No
  Sender: FDA-Public Use
  Company Number: US-PFIZER INC-2014170569

PATIENT
  Age: 69 Year
  Sex: Female

DRUGS (4)
  1. LYRICA [Suspect]
     Active Substance: PREGABALIN
     Indication: INTERVERTEBRAL DISC DEGENERATION
  2. LYRICA [Suspect]
     Active Substance: PREGABALIN
     Indication: RADICULOPATHY
  3. LYRICA [Suspect]
     Active Substance: PREGABALIN
     Indication: SCIATICA
  4. LYRICA [Suspect]
     Active Substance: PREGABALIN
     Indication: FIBROMYALGIA
     Dosage: 150 MG, 2X/DAY
     Route: 048

REACTIONS (6)
  - Sports injury [Unknown]
  - Gait disturbance [Unknown]
  - Fall [Recovered/Resolved]
  - Pain [Unknown]
  - Balance disorder [Unknown]
  - Nausea [Unknown]
